FAERS Safety Report 6707165-7 (Version None)
Quarter: 2010Q2

REPORT INFORMATION
  Report Type: 
  Country: None (occurrence: None)
  Receive Date: 20100503
  Receipt Date: 20091002
  Transmission Date: 20101027
  Serious: Yes (Hospitalization)
  Sender: FDA-Public Use
  Company Number: US-ASTRAZENECA-2009SE17635

PATIENT
  Age: 25474 Day
  Sex: Male
  Weight: 68 kg

DRUGS (10)
  1. NEXIUM [Suspect]
     Indication: GASTROOESOPHAGEAL REFLUX DISEASE
     Route: 048
     Dates: start: 20081118
  2. IRINOTECAN HCL [Suspect]
     Indication: COLORECTAL CANCER METASTATIC
     Dosage: 340 MG EVERY 15 DAYS
     Route: 065
     Dates: start: 20080729, end: 20081202
  3. FLUOROURACIL [Suspect]
     Indication: COLORECTAL CANCER METASTATIC
     Dosage: 3650 MG EVERY 15 DAYS
     Route: 042
     Dates: start: 20080729, end: 20081202
  4. AVASTIN [Suspect]
     Indication: COLORECTAL CANCER METASTATIC
     Dosage: 350 MG EVERY 15 DAYS
     Route: 065
     Dates: start: 20080729, end: 20081202
  5. IMODIUM [Suspect]
     Indication: DIARRHOEA
     Route: 048
     Dates: start: 20080729
  6. AMLOR [Suspect]
     Indication: HYPERTENSION
     Route: 048
  7. GLYBURIDE [Suspect]
     Indication: TYPE 2 DIABETES MELLITUS
     Route: 048
  8. MEDIATOR [Suspect]
     Indication: TYPE 2 DIABETES MELLITUS
     Route: 048
  9. CELECTOL [Suspect]
     Indication: HYPERTENSION
     Route: 048
  10. AMAREL [Suspect]
     Indication: TYPE 2 DIABETES MELLITUS
     Route: 048

REACTIONS (1)
  - DIARRHOEA [None]
